FAERS Safety Report 19163663 (Version 1)
Quarter: 2021Q2

REPORT INFORMATION
  Report Type: Report from Study
  Country: US (occurrence: US)
  Receive Date: 20210421
  Receipt Date: 20210421
  Transmission Date: 20210717
  Serious: Yes (Other)
  Sender: FDA-Public Use
  Company Number: US-PFIZER INC-2021326916

PATIENT
  Age: 17 Year
  Sex: Female

DRUGS (2)
  1. GEMCITABINE HYDROCHLORIDE. [Suspect]
     Active Substance: GEMCITABINE HYDROCHLORIDE
     Indication: OSTEOSARCOMA METASTATIC
     Dosage: UNK
  2. DOCETAXEL. [Concomitant]
     Active Substance: DOCETAXEL
     Indication: OSTEOSARCOMA METASTATIC
     Dosage: UNK

REACTIONS (1)
  - Muscle necrosis [Unknown]
